FAERS Safety Report 6509414-7 (Version None)
Quarter: 2009Q4

REPORT INFORMATION
  Report Type: 
  Country: None (occurrence: None)
  Receive Date: 20091222
  Receipt Date: 20091215
  Transmission Date: 20100525
  Serious: Yes (Other)
  Sender: FDA-Public Use
  Company Number: US-JNJFOC-20091205094

PATIENT
  Age: 73 Year
  Sex: Female
  Weight: 99.79 kg

DRUGS (5)
  1. TYLENOL (CAPLET) [Suspect]
     Route: 048
  2. TYLENOL (CAPLET) [Suspect]
     Indication: ARTHRALGIA
     Dosage: TWICE
     Route: 048
  3. NIFEDIPINE [Concomitant]
     Indication: HYPERTENSION
  4. BIOTIN [Concomitant]
     Indication: NUTRITIONAL SUPPORT
  5. BIOTIN [Concomitant]
     Indication: ALOPECIA

REACTIONS (1)
  - RECTAL HAEMORRHAGE [None]
